FAERS Safety Report 24653867 (Version 1)
Quarter: 2024Q4

REPORT INFORMATION
  Report Type: Spontaneous
  Country: US (occurrence: None)
  Receive Date: 20241121
  Receipt Date: 20241121
  Transmission Date: 20250114
  Serious: Yes (Other)
  Sender: Public
  Company Number: None

PATIENT
  Sex: Female

DRUGS (8)
  1. DROPERIDOL [Suspect]
     Active Substance: DROPERIDOL
     Indication: Nausea
     Dates: start: 20240915, end: 20240915
  2. ESCITALOPRAM [Concomitant]
     Active Substance: ESCITALOPRAM OXALATE
  3. SUBOXONE [Concomitant]
     Active Substance: BUPRENORPHINE HYDROCHLORIDE\NALOXONE HYDROCHLORIDE
  4. DIAZEPAM [Concomitant]
     Active Substance: DIAZEPAM
  5. CLONAZEPAM [Concomitant]
     Active Substance: CLONAZEPAM
  6. SUBUTEX [Concomitant]
     Active Substance: BUPRENORPHINE HYDROCHLORIDE
  7. IBUPROFEN [Concomitant]
     Active Substance: IBUPROFEN
  8. NAPROXEN [Concomitant]
     Active Substance: NAPROXEN

REACTIONS (11)
  - Nausea [None]
  - Insomnia [None]
  - Vomiting [None]
  - Diarrhoea [None]
  - Influenza like illness [None]
  - Psychomotor hyperactivity [None]
  - Palpitations [None]
  - Pain [None]
  - Anxiety [None]
  - Confusional state [None]
  - Brain fog [None]

NARRATIVE: CASE EVENT DATE: 20240915
